FAERS Safety Report 6008568-9 (Version None)
Quarter: 2008Q4

REPORT INFORMATION
  Report Type: 
  Country: None (occurrence: None)
  Receive Date: 20081217
  Receipt Date: 20081208
  Transmission Date: 20090506
  Serious: Yes (Death, Other)
  Sender: FDA-Public Use
  Company Number: US-B.I. PHARMACEUTICALS,INC./RIDGEFIELD-2006-DE-06116GD

PATIENT

DRUGS (2)
  1. NEVIRAPINE [Suspect]
     Indication: HIV INFECTION
  2. ANTI-HIV AGENTS [Suspect]
     Indication: HIV INFECTION

REACTIONS (5)
  - DEATH [None]
  - DISEASE PROGRESSION [None]
  - DRUG RESISTANCE [None]
  - HEPATOTOXICITY [None]
  - RASH [None]
